FAERS Safety Report 5499240-2 (Version None)
Quarter: 2007Q4

REPORT INFORMATION
  Report Type: 
  Country: None (occurrence: None)
  Receive Date: 20071026
  Receipt Date: 20071015
  Transmission Date: 20080405
  Serious: Yes (Hospitalization)
  Sender: FDA-Public Use
  Company Number: US-JNJFOC-20071002992

PATIENT
  Age: 33 Year
  Sex: Female
  Weight: 62.14 kg

DRUGS (5)
  1. MONISTAT 1 COMBINATION PACK [Suspect]
     Route: 067
  2. MONISTAT 1 COMBINATION PACK [Suspect]
     Indication: FUNGAL INFECTION
     Route: 067
  3. MONISTAT 1 COMBINATION PACK [Suspect]
     Route: 061
  4. MONISTAT 1 COMBINATION PACK [Suspect]
     Dosage: 100MG TUBE (2% STRENGTH EXTERNAL CREAM)
     Route: 061
  5. VITAMINS [Concomitant]
     Route: 065

REACTIONS (4)
  - HYPERTENSION [None]
  - PYREXIA [None]
  - VAGINAL SWELLING [None]
  - VULVOVAGINAL PRURITUS [None]
